FAERS Safety Report 8606766 (Version 4)
Quarter: 2014Q1

REPORT INFORMATION
  Report Type: Spontaneous
  Country: US (occurrence: US)
  Receive Date: 20120611
  Receipt Date: 20140127
  Transmission Date: 20141002
  Serious: Yes (Hospitalization, Other)
  Sender: FDA-Public Use
  Company Number: US-ASTRAZENECA-2012SE34935

PATIENT
  Age: 42 Year
  Sex: Female

DRUGS (15)
  1. NEXIUM [Suspect]
     Indication: GASTROOESOPHAGEAL REFLUX DISEASE
     Dosage: DAILY
     Route: 048
     Dates: start: 1998
  2. NEXIUM [Suspect]
     Indication: GASTROOESOPHAGEAL REFLUX DISEASE
     Route: 048
     Dates: start: 20070420
  3. NEXIUM [Suspect]
     Indication: GASTROOESOPHAGEAL REFLUX DISEASE
     Route: 048
     Dates: start: 20130723
  4. NEXIUM [Suspect]
     Indication: GASTROOESOPHAGEAL REFLUX DISEASE
     Route: 048
     Dates: start: 20130922
  5. VITAMIN D3 [Concomitant]
     Dosage: 50000 UNITS
  6. VITAMIN D3 [Concomitant]
     Route: 048
     Dates: start: 20130723
  7. LORAZEPAM [Concomitant]
     Dates: start: 20070111
  8. CITALOPRAM [Concomitant]
     Dates: start: 20070520
  9. PRILOSEC [Concomitant]
     Dates: start: 20070108
  10. PREDNISONE [Concomitant]
     Dates: start: 200901
  11. AMITRIPTYLINE [Concomitant]
     Route: 048
     Dates: start: 20130723
  12. NORVASC [Concomitant]
     Route: 048
     Dates: start: 20130723
  13. ABILIFY [Concomitant]
     Route: 048
     Dates: start: 20130723
  14. CYMBALTA [Concomitant]
     Route: 048
     Dates: start: 20130723
  15. AMBIEN [Concomitant]
     Route: 048
     Dates: start: 20130723

REACTIONS (16)
  - Haematemesis [Unknown]
  - Gastric haemorrhage [Unknown]
  - Osteoporosis [Unknown]
  - Multiple fractures [Unknown]
  - Carpal tunnel syndrome [Unknown]
  - Foot fracture [Unknown]
  - Fall [Unknown]
  - Ankle fracture [Unknown]
  - Foot deformity [Unknown]
  - Chronic obstructive pulmonary disease [Unknown]
  - Type 2 diabetes mellitus [Unknown]
  - Rheumatoid arthritis [Unknown]
  - Vitamin D deficiency [Unknown]
  - Liver disorder [Unknown]
  - Asthma [Unknown]
  - Osteoarthritis [Unknown]
